FAERS Safety Report 5197332-9 (Version None)
Quarter: 2007Q1

REPORT INFORMATION
  Report Type: 
  Country: None (occurrence: None)
  Receive Date: 20070103
  Receipt Date: 20061222
  Transmission Date: 20070707
  Serious: Yes (Disabling)
  Sender: FDA-Public Use
  Company Number: FR-GILEAD-2006-0010887

PATIENT
  Sex: Male

DRUGS (6)
  1. TRUVADA [Suspect]
     Indication: HIV INFECTION
  2. DARUNAVIR [Suspect]
     Indication: HIV INFECTION
     Route: 048
     Dates: start: 20060824
  3. RITONAVIR [Suspect]
     Indication: HIV INFECTION
  4. FUZEON [Concomitant]
     Indication: HIV INFECTION
     Dates: start: 20060424
  5. DIVARIUS [Concomitant]
     Indication: DEPRESSION
     Route: 048
     Dates: start: 20040101
  6. LORAZEPAM [Concomitant]
     Indication: ANXIETY
     Dates: start: 19990101

REACTIONS (2)
  - PARAESTHESIA [None]
  - VERTIGO [None]
